FAERS Safety Report 20653282 (Version 1)
Quarter: 2022Q1

REPORT INFORMATION
  Report Type: Report from Study
  Country: CA (occurrence: CA)
  Receive Date: 20220330
  Receipt Date: 20220330
  Transmission Date: 20220424
  Serious: Yes (Hospitalization, Other)
  Sender: FDA-Public Use
  Company Number: CA-JNJFOC-20220248331

PATIENT
  Age: 78 Year
  Sex: Female

DRUGS (2)
  1. STELARA [Suspect]
     Active Substance: USTEKINUMAB
     Indication: Crohn^s disease
     Dosage: START DATE ALSO REPORTED AS 31/JAN/2022
     Route: 042
     Dates: start: 20211206
  2. STELARA [Suspect]
     Active Substance: USTEKINUMAB
     Route: 058

REACTIONS (10)
  - Delirium [Unknown]
  - Lung abscess [Recovering/Resolving]
  - Abscess bacterial [Recovering/Resolving]
  - Abscess fungal [Recovering/Resolving]
  - Gastroenteritis [Not Recovered/Not Resolved]
  - Sinusitis [Not Recovered/Not Resolved]
  - Pneumonia [Recovering/Resolving]
  - Weight decreased [Unknown]
  - Off label use [Unknown]
  - Incorrect dose administered [Unknown]

NARRATIVE: CASE EVENT DATE: 20220131
